FAERS Safety Report 6308899-9 (Version None)
Quarter: 2009Q3

REPORT INFORMATION
  Report Type: 
  Country: None (occurrence: None)
  Receive Date: 20090813
  Receipt Date: 20090218
  Transmission Date: 20100115
  Serious: No
  Sender: FDA-Public Use
  Company Number: US-ALLERGAN-0902135US

PATIENT
  Age: 78 Year
  Sex: Female

DRUGS (2)
  1. COMBIGAN [Suspect]
     Indication: GLAUCOMA
     Dosage: UNK, BID
     Route: 047
     Dates: start: 20090201
  2. LUMIGAN [Suspect]
     Indication: GLAUCOMA
     Dosage: UNK, QD
     Route: 047
     Dates: start: 20090201

REACTIONS (2)
  - EYE PRURITUS [None]
  - INCORRECT STORAGE OF DRUG [None]
